FAERS Safety Report 5916565-4 (Version None)
Quarter: 2008Q4

REPORT INFORMATION
  Report Type: 
  Country: None (occurrence: None)
  Receive Date: 20081013
  Receipt Date: 20081006
  Transmission Date: 20090506
  Serious: Yes (Hospitalization)
  Sender: FDA-Public Use
  Company Number: CH-BRISTOL-MYERS SQUIBB COMPANY-14364079

PATIENT
  Age: 68 Year
  Sex: Male

DRUGS (6)
  1. CETUXIMAB [Suspect]
     Indication: COLORECTAL CANCER
     Dosage: STARTED ON 23-JUN-2008.
     Route: 042
     Dates: start: 20080908, end: 20080908
  2. BEVACIZUMAB [Suspect]
     Indication: COLORECTAL CANCER
     Dosage: STARTED ON 23-JUN-2008.
     Route: 042
     Dates: start: 20080908, end: 20080908
  3. OXALIPLATIN [Suspect]
     Indication: COLORECTAL CANCER
     Dosage: STARTED ON 23-JUN-2008.
     Route: 042
     Dates: start: 20080908, end: 20080908
  4. IRINOTECAN HYDROCHLORIDE [Suspect]
     Indication: COLORECTAL CANCER
     Dosage: STARTED ON 30-JUN-2008.
     Route: 042
     Dates: start: 20080825, end: 20080825
  5. FLUOROURACIL [Suspect]
     Indication: COLORECTAL CANCER
     Dosage: STARTED ON 23-JUN-2008.
     Route: 042
     Dates: start: 20080908, end: 20080908
  6. LEUCOVORIN CALCIUM [Suspect]
     Indication: COLORECTAL CANCER
     Dosage: STARTED ON 23-JUN-2008.
     Route: 042
     Dates: start: 20080908, end: 20080908

REACTIONS (2)
  - EYELID FUNCTION DISORDER [None]
  - KERATOCONJUNCTIVITIS SICCA [None]
